FAERS Safety Report 10754104 (Version 1)
Quarter: 2015Q1

REPORT INFORMATION
  Report Type: Spontaneous
  Country: US (occurrence: None)
  Receive Date: 20150129
  Receipt Date: 20150129
  Transmission Date: 20150721
  Serious: No
  Sender: FDA-Public Use
  Company Number: None

PATIENT
  Age: 27 Year
  Sex: Female
  Weight: 82.56 kg

DRUGS (1)
  1. MIRENA [Suspect]
     Active Substance: LEVONORGESTREL

REACTIONS (9)
  - Decreased interest [None]
  - Sexual dysfunction [None]
  - Muscle spasms [None]
  - Vaginal haemorrhage [None]
  - Depression [None]
  - Menstruation irregular [None]
  - Weight increased [None]
  - Acne [None]
  - Fatigue [None]

NARRATIVE: CASE EVENT DATE: 20150126
